FAERS Safety Report 8920754 (Version 1)
Quarter: 2012Q4

REPORT INFORMATION
  Report Type: 
  Country: US (occurrence: US)
  Receive Date: 20121121
  Receipt Date: 20121121
  Transmission Date: 20130627
  Serious: No
  Sender: FDA-Public Use
  Company Number: US-PFIZER INC-2012291816

PATIENT
  Age: 79 Year
  Sex: Male
  Weight: 61.22 kg

DRUGS (2)
  1. ADVIL [Suspect]
     Indication: PAIN
     Dosage: 200 mg, 3x/day
     Route: 048
     Dates: start: 201211, end: 201211
  2. ADVIL [Suspect]
     Indication: FEVER

REACTIONS (4)
  - Drug ineffective [Unknown]
  - Erythema [Not Recovered/Not Resolved]
  - Rash [Not Recovered/Not Resolved]
  - Pruritus [Not Recovered/Not Resolved]
